FAERS Safety Report 13680162 (Version 1)
Quarter: 2017Q2

REPORT INFORMATION
  Report Type: Spontaneous
  Country: US (occurrence: US)
  Receive Date: 20170622
  Receipt Date: 20170622
  Transmission Date: 20170830
  Serious: No
  Sender: FDA-Public Use
  Company Number: US-TEIKOKU PHARMA USA-TPU2017-00177

PATIENT
  Age: 84 Year
  Sex: Female
  Weight: 54.48 kg

DRUGS (3)
  1. AMLODIPINE [Concomitant]
     Active Substance: AMLODIPINE BESYLATE
     Indication: HYPERTENSION
  2. LIDOCAINE PATCH [Suspect]
     Active Substance: LIDOCAINE
     Indication: HERPES ZOSTER
     Dosage: 1 PATCH TO MOST PAINFUL AREA
     Route: 061
     Dates: start: 201703
  3. VALSARTAN AND HYDROCHLOROTHIAZIDE [Concomitant]
     Active Substance: HYDROCHLOROTHIAZIDE\VALSARTAN
     Indication: HYPERTENSION
     Dosage: 320/25MG ONCE A DAY

REACTIONS (1)
  - Pain [Not Recovered/Not Resolved]

NARRATIVE: CASE EVENT DATE: 201703
